FAERS Safety Report 8817572 (Version 1)
Quarter: 2012Q4

REPORT INFORMATION
  Report Type: 
  Country: US (occurrence: US)
  Receive Date: 20121001
  Receipt Date: 20121001
  Transmission Date: 20130627
  Serious: No
  Sender: FDA-Public Use
  Company Number: US-MUTUAL PHARMACEUTICAL COMPANY, INC.-CLND20120002

PATIENT
  Sex: Female
  Weight: 68.1 kg

DRUGS (6)
  1. CLONIDINE HYDROCHLORIDE TABLETS 0.2 MG [Suspect]
     Indication: BLOOD PRESSURE HIGH
     Route: 065
     Dates: start: 2002
  2. LOTREL 5/20 MG [Concomitant]
     Indication: BLOOD PRESSURE HIGH
     Route: 065
  3. SOTALOL [Concomitant]
     Indication: IRREGULAR PULSE
     Route: 048
  4. SYNTHROID [Concomitant]
     Indication: HYPOTHYROIDISM
     Route: 048
  5. ALLOPURINOL [Concomitant]
     Indication: GOUT
     Route: 048
  6. NATEGLINIDE [Concomitant]
     Indication: DIABETES
     Route: 048

REACTIONS (2)
  - Blood pressure increased [Not Recovered/Not Resolved]
  - Drug effect decreased [None]
